FAERS Safety Report 5083376-4 (Version None)
Quarter: 2006Q3

REPORT INFORMATION
  Report Type: 
  Country: None (occurrence: None)
  Receive Date: 20060816
  Receipt Date: 20060816
  Transmission Date: 20061208
  Serious: Yes (Hospitalization)
  Sender: FDA-Public Use
  Company Number: None

PATIENT
  Age: 77 Year
  Sex: Female
  Weight: 99.6 kg

DRUGS (12)
  1. AMIODARONE [Suspect]
     Indication: VENTRICULAR TACHYARRHYTHMIA
     Dosage: 200 MG PO DAILY
     Route: 048
  2. BUMEX [Concomitant]
  3. PLAVIX [Concomitant]
  4. PROTONIX [Concomitant]
  5. SPIRIVA [Concomitant]
  6. ALBUTEROL SPIROS [Concomitant]
  7. COREG [Concomitant]
  8. POTASSIUM CHLORIDE [Concomitant]
  9. COUMADIN [Concomitant]
  10. VYTORIN [Concomitant]
  11. NEURONTIN [Concomitant]
  12. ELAVIL [Concomitant]

REACTIONS (5)
  - CARDIAC FAILURE CONGESTIVE [None]
  - CHRONIC OBSTRUCTIVE PULMONARY DISEASE [None]
  - HYPOTHYROIDISM [None]
  - HYPOXIA [None]
  - PYREXIA [None]
